FAERS Safety Report 14264196 (Version 2)
Quarter: 2017Q4

REPORT INFORMATION
  Report Type: Spontaneous
  Country: ZA (occurrence: ZA)
  Receive Date: 20171208
  Receipt Date: 20171218
  Transmission Date: 20180321
  Serious: Yes (Hospitalization)
  Sender: FDA-Public Use
  Company Number: ZA-PURDUE PHARMA-GBR-2017-0051181

PATIENT
  Age: 43 Year
  Sex: Male

DRUGS (2)
  1. OXYNORM [Suspect]
     Active Substance: OXYCODONE HYDROCHLORIDE
     Indication: PROCEDURAL PAIN
     Dosage: 10 MG, TID (STRENGTH 10MG)
     Route: 048
     Dates: start: 20170914, end: 20170917
  2. TARGINACT [Suspect]
     Active Substance: NALOXONE HYDROCHLORIDE\OXYCODONE HYDROCHLORIDE
     Indication: PROCEDURAL PAIN
     Dosage: 20 MG, DAILY (STRENGTH 10/5MG)
     Route: 048
     Dates: start: 20170914, end: 20170919

REACTIONS (4)
  - Hyperhidrosis [Recovered/Resolved]
  - Restless legs syndrome [Recovered/Resolved]
  - Drug dependence [Recovered/Resolved]
  - Insomnia [Recovered/Resolved]

NARRATIVE: CASE EVENT DATE: 20170925
